FAERS Safety Report 15776748 (Version 1)
Quarter: 2018Q4

REPORT INFORMATION
  Report Type: Report from Study
  Country: None (occurrence: NL)
  Receive Date: 20181231
  Receipt Date: 20181231
  Transmission Date: 20190205
  Serious: Yes (Other)
  Sender: FDA-Public Use
  Company Number: NL-ABBVIE-18S-114-2603795-00

PATIENT

DRUGS (5)
  1. DUODOPA [Suspect]
     Active Substance: CARBIDOPA\LEVODOPA
     Indication: PARKINSON^S DISEASE
     Route: 050
     Dates: start: 201701
  2. LEVODOPA/CARBIDOPA 250 CR [Concomitant]
     Indication: PRODUCT USED FOR UNKNOWN INDICATION
     Dosage: 200/50 MG, FOR THE NIGHT
     Route: 065
  3. DUODOPA [Suspect]
     Active Substance: CARBIDOPA\LEVODOPA
     Indication: PARKINSON^S DISEASE
  4. SINEMET 125 [Concomitant]
     Indication: PRODUCT USED FOR UNKNOWN INDICATION
     Dosage: 100/25 MG
  5. MADOPAR 125 DISPER [Concomitant]
     Indication: PRODUCT USED FOR UNKNOWN INDICATION
     Dosage: 100 MG/25 MG
     Route: 065

REACTIONS (9)
  - Gastrointestinal wall thickening [Unknown]
  - Chronic gastritis [Unknown]
  - Weight decreased [Unknown]
  - Orthostatic hypotension [Unknown]
  - Lymphadenopathy [Unknown]
  - Depression [Unknown]
  - Lymphoma [Unknown]
  - Gastric disorder [Unknown]
  - Medical device site erosion [Unknown]

NARRATIVE: CASE EVENT DATE: 201810
